FAERS Safety Report 7450326-2 (Version None)
Quarter: 2011Q2

REPORT INFORMATION
  Report Type: 
  Country: None (occurrence: None)
  Receive Date: 20110502
  Receipt Date: 20110314
  Transmission Date: 20111010
  Serious: Yes (Hospitalization, Other)
  Sender: FDA-Public Use
  Company Number: US-BAYER-201018395NA

PATIENT
  Age: 15 Year
  Sex: Female
  Weight: 100 kg

DRUGS (14)
  1. TUSSI-ORGANIDIN [CODEINE PHOSPHATE,IODINATED GLYCEROL] [Concomitant]
  2. METFORMIN [Concomitant]
  3. ANTIBIOTICS [Concomitant]
  4. ADVIL LIQUI-GELS [Concomitant]
  5. LECITHIN [Concomitant]
  6. ACETAMINOPHEN [Concomitant]
  7. ALLEGRA D 24 HOUR [Concomitant]
  8. MORPHINE [Concomitant]
  9. BACTRIM DS [Concomitant]
  10. IBUPROFEN [Concomitant]
  11. LEVSIN [Concomitant]
  12. VITAMINS [Concomitant]
     Dosage: UNK
     Dates: start: 20081014
  13. YAZ [Suspect]
     Indication: PREMENSTRUAL SYNDROME
     Route: 048
     Dates: start: 20070716, end: 20080227
  14. ZITHROMAX [Concomitant]

REACTIONS (7)
  - CHOLECYSTITIS ACUTE [None]
  - GALLBLADDER INJURY [None]
  - HEPATOBILIARY SCAN ABNORMAL [None]
  - BILIARY DYSKINESIA [None]
  - ABDOMINAL PAIN UPPER [None]
  - NAUSEA [None]
  - CONSTIPATION [None]
